FAERS Safety Report 4659554-2 (Version None)
Quarter: 2005Q2

REPORT INFORMATION
  Report Type: 
  Country: None (occurrence: None)
  Receive Date: 20050510
  Receipt Date: 20050427
  Transmission Date: 20051028
  Serious: Yes (Other)
  Sender: FDA-Public Use
  Company Number: 2005055871

PATIENT
  Age: 53 Year
  Sex: Male
  Weight: 60 kg

DRUGS (2)
  1. SOLU-CORTEF [Suspect]
     Indication: ILL-DEFINED DISORDER
     Dosage: 100 MG (100 MG, 1 IN 1D)
     Dates: start: 19990301, end: 20000111
  2. DRUG, UNSPECIFIED [Suspect]
     Indication: ILL-DEFINED DISORDER

REACTIONS (2)
  - ASEPTIC NECROSIS BONE [None]
  - SURGERY [None]
